FAERS Safety Report 9219505 (Version 1)
Quarter: 2013Q2

REPORT INFORMATION
  Report Type: Spontaneous
  Country: US (occurrence: US)
  Receive Date: 20130409
  Receipt Date: 20130409
  Transmission Date: 20140414
  Serious: No
  Sender: FDA-Public Use
  Company Number: US-PFIZER INC-2013109873

PATIENT
  Age: 53 Year
  Sex: Female

DRUGS (5)
  1. ALAVERT [Suspect]
     Indication: RHINORRHOEA
     Dosage: UNK, ONCE
     Dates: start: 20130404, end: 20130404
  2. ALAVERT [Suspect]
     Indication: PRURITUS
  3. ALAVERT [Suspect]
     Indication: SNEEZING
  4. ALAVERT [Suspect]
     Indication: EAR PRURITUS
  5. ALAVERT [Suspect]
     Indication: LACRIMATION INCREASED

REACTIONS (1)
  - Abdominal discomfort [Not Recovered/Not Resolved]
